FAERS Safety Report 7074459-8 (Version None)
Quarter: 2010Q4

REPORT INFORMATION
  Report Type: 
  Country: None (occurrence: None)
  Receive Date: 20101029
  Receipt Date: 20101020
  Transmission Date: 20110411
  Serious: Yes (Hospitalization)
  Sender: FDA-Public Use
  Company Number: US-US-EMD SERONO, INC.-7023470

PATIENT
  Sex: Female

DRUGS (3)
  1. REBIF [Suspect]
     Indication: MULTIPLE SCLEROSIS
     Route: 058
     Dates: start: 20080815, end: 20101001
  2. MOTRIN [Concomitant]
     Indication: PREMEDICATION
  3. AMPYRA [Concomitant]
     Dates: start: 20100501

REACTIONS (3)
  - ASTHENIA [None]
  - ENCEPHALITIS HERPES [None]
  - HERPES ZOSTER [None]
